FAERS Safety Report 9767519 (Version 2)
Quarter: 2013Q4

REPORT INFORMATION
  Report Type: Spontaneous
  Country: US (occurrence: US)
  Receive Date: 20131217
  Receipt Date: 20131217
  Transmission Date: 20140711
  Serious: No
  Sender: FDA-Public Use
  Company Number: US-GILEAD-2009-0019741

PATIENT
  Age: 66 Year
  Sex: Male

DRUGS (10)
  1. VIREAD [Suspect]
     Indication: CHRONIC HEPATITIS B
     Dates: start: 200812
  2. TRUVADA [Concomitant]
     Dates: start: 200801, end: 200811
  3. NEXIUM [Concomitant]
  4. NORVASC [Concomitant]
  5. CARVEDILOL [Concomitant]
  6. SIMVASTATIN [Concomitant]
  7. PLAVIX [Concomitant]
  8. PAROXETINE [Concomitant]
  9. HUMALOG INSULIN [Concomitant]
  10. DIOVAN [Concomitant]
     Indication: HYPERTENSION

REACTIONS (1)
  - Rash pruritic [Not Recovered/Not Resolved]
